FAERS Safety Report 20770039 (Version 1)
Quarter: 2022Q2

REPORT INFORMATION
  Report Type: Spontaneous
  Country: US (occurrence: US)
  Receive Date: 20220429
  Receipt Date: 20220429
  Transmission Date: 20220721
  Serious: No
  Sender: FDA-Public Use
  Company Number: US-BIOGEN-2022BI01117360

PATIENT
  Sex: Female
  Weight: 76.2 kg

DRUGS (1)
  1. TECFIDERA [Suspect]
     Active Substance: DIMETHYL FUMARATE
     Indication: Product used for unknown indication
     Route: 065

REACTIONS (17)
  - Band sensation [Unknown]
  - Exercise tolerance decreased [Recovered/Resolved]
  - Arthralgia [Recovered/Resolved]
  - Hypoaesthesia [Recovered/Resolved]
  - Alopecia [Recovered/Resolved]
  - Blood pressure increased [Recovered/Resolved]
  - Limb discomfort [Recovered/Resolved]
  - Monoparesis [Recovered/Resolved]
  - Rectal prolapse [Recovered/Resolved]
  - Haemorrhoids [Recovered/Resolved]
  - Nerve injury [Recovered/Resolved]
  - Spinal stenosis [Recovered/Resolved]
  - Intervertebral disc degeneration [Recovered/Resolved]
  - Paraesthesia [Unknown]
  - Rash [Recovered/Resolved]
  - Hepatic enzyme increased [Recovered/Resolved]
  - Diarrhoea [Unknown]
